FAERS Safety Report 5036937-2 (Version None)
Quarter: 2006Q2

REPORT INFORMATION
  Report Type: 
  Country: None (occurrence: None)
  Receive Date: 20060626
  Receipt Date: 20060524
  Transmission Date: 20061013
  Serious: Yes (Hospitalization, Disabling)
  Sender: FDA-Public Use
  Company Number: 225308

PATIENT
  Age: 24 Year
  Sex: Female

DRUGS (2)
  1. XOLAIR [Suspect]
     Indication: ASTHMA
     Dosage: 300 + 150 MG, UNK, SUBUCTANEOUS
     Route: 058
     Dates: start: 20060510
  2. XOLAIR [Suspect]
     Indication: ASTHMA
     Dosage: 300 + 150 MG, UNK, SUBUCTANEOUS
     Route: 058
     Dates: start: 20060524

REACTIONS (5)
  - BRONCHOSPASM [None]
  - PALLOR [None]
  - PEAK EXPIRATORY FLOW RATE DECREASED [None]
  - RALES [None]
  - SOMATOFORM DISORDER [None]
